FAERS Safety Report 7125189-5 (Version None)
Quarter: 2010Q4

REPORT INFORMATION
  Report Type: 
  Country: None (occurrence: None)
  Receive Date: 20101129
  Receipt Date: 20101117
  Transmission Date: 20110411
  Serious: Yes (Other)
  Sender: FDA-Public Use
  Company Number: PHHY2010BE53852

PATIENT
  Age: 81 Year
  Sex: Male

DRUGS (3)
  1. ZOMETA [Suspect]
     Indication: METASTASES TO NECK
     Dosage: 4 MG, UNK
     Dates: start: 20100401
  2. ZOMETA [Suspect]
     Dosage: 4 MG
     Dates: start: 20100501
  3. LOCAL RADIOTHERAPY [Suspect]
     Indication: METASTASES TO NECK
     Dosage: UNK
     Dates: start: 20100401

REACTIONS (5)
  - BONE DEBRIDEMENT [None]
  - BONE DISORDER [None]
  - ORAL DISORDER [None]
  - OSTEONECROSIS OF JAW [None]
  - TOOTH DISORDER [None]
